FAERS Safety Report 5678135-5 (Version None)
Quarter: 2008Q1

REPORT INFORMATION
  Report Type: 
  Country: None (occurrence: None)
  Receive Date: 20080324
  Receipt Date: 20080324
  Transmission Date: 20080703
  Serious: Yes (Hospitalization)
  Sender: FDA-Public Use
  Company Number: None

PATIENT
  Age: 70 Year
  Sex: Male
  Weight: 149.2 kg

DRUGS (2)
  1. FUROSEMIDE [Suspect]
     Indication: HYPERTENSION
     Dosage: 60MG  AM  PO
     Route: 048
     Dates: start: 20070829
  2. WARFARIN SODIUM [Suspect]
     Indication: ATRIAL FIBRILLATION
     Dosage: 5MG EVERY DAY PO
     Route: 048
     Dates: start: 20070815

REACTIONS (4)
  - FALL [None]
  - HAEMATOMA [None]
  - HYPOVOLAEMIA [None]
  - POLYURIA [None]
